FAERS Safety Report 13006478 (Version 5)
Quarter: 2018Q1

REPORT INFORMATION
  Report Type: Report from Study
  Country: MX (occurrence: MX)
  Receive Date: 20161207
  Receipt Date: 20180328
  Transmission Date: 20180508
  Serious: Yes (Other)
  Sender: FDA-Public Use
  Company Number: PHHY2016MX159798

PATIENT
  Sex: Female
  Weight: 61 kg

DRUGS (3)
  1. CALCIUM + VITAMIN D [Concomitant]
     Active Substance: CALCIUM\VITAMIN D
     Indication: PRODUCT USED FOR UNKNOWN INDICATION
     Dosage: UNK
     Route: 065
  2. CLONAZEPAM. [Concomitant]
     Active Substance: CLONAZEPAM
     Indication: SLEEP DISORDER
     Dosage: 7 DRP, UNK (7 YEARS AGO)
     Route: 048
  3. ACLASTA [Suspect]
     Active Substance: ZOLEDRONIC ACID
     Indication: OSTEOPOROSIS
     Dosage: 1 DF (5 MG/ 100 ML), Q12MO (ANNUALLY)
     Route: 042
     Dates: start: 20161014

REACTIONS (15)
  - Cartilage injury [Not Recovered/Not Resolved]
  - Insomnia [Not Recovered/Not Resolved]
  - Heart rate increased [Not Recovered/Not Resolved]
  - Weight increased [Not Recovered/Not Resolved]
  - Fatigue [Not Recovered/Not Resolved]
  - Psychiatric symptom [Unknown]
  - Depressed mood [Unknown]
  - Fracture [Unknown]
  - Feeling abnormal [Unknown]
  - Stress [Unknown]
  - Gait disturbance [Not Recovered/Not Resolved]
  - Bone pain [Unknown]
  - Somnolence [Unknown]
  - Pain [Unknown]
  - Anxiety [Unknown]
